FAERS Safety Report 9291627 (Version 4)
Quarter: 2013Q2

REPORT INFORMATION
  Report Type: Spontaneous
  Country: US (occurrence: US)
  Receive Date: 20130515
  Receipt Date: 20130619
  Transmission Date: 20140414
  Serious: Yes (Life-Threatening)
  Sender: FDA-Public Use
  Company Number: US-009507513-1305USA004508

PATIENT
  Age: 23 Year
  Sex: Female
  Weight: 72.56 kg

DRUGS (1)
  1. IMPLANON [Suspect]
     Indication: CONTRACEPTION
     Dosage: 1 ROD UP TO 3 YEARS
     Route: 059
     Dates: start: 20120531, end: 20130511

REACTIONS (8)
  - Suicidal ideation [Recovered/Resolved]
  - Depression [Unknown]
  - Mood swings [Unknown]
  - Anger [Unknown]
  - Crying [Unknown]
  - Weight increased [Unknown]
  - Feeling abnormal [Unknown]
  - Medication error [Unknown]
